FAERS Safety Report 5207808-3 (Version None)
Quarter: 2006Q4

REPORT INFORMATION
  Report Type: 
  Country: None (occurrence: None)
  Receive Date: 20061030
  Receipt Date: 20060703
  Transmission Date: 20070319
  Serious: No
  Sender: FDA-Public Use
  Company Number: 2005CT000346

PATIENT
  Age: 57 Year
  Sex: Female
  Weight: 49.8957 kg

DRUGS (8)
  1. VENTAVIS [Suspect]
     Indication: PULMONARY HYPERTENSION
     Dosage: 5 UG; 5 TO 6X/DA; INH
     Route: 055
     Dates: start: 20051026
  2. DOCETAXEL [Suspect]
     Indication: BREAST CANCER
     Dates: start: 20051215
  3. CYCLOPHOSPHAMIDE [Suspect]
     Indication: BREAST CANCER
     Dates: start: 20051215
  4. TRACLEER [Concomitant]
  5. ASPIRIN [Concomitant]
  6. METOPROLOL SUCCINATE [Concomitant]
  7. SILDENAFIL CITRATE [Concomitant]
  8. CRESTOR [Concomitant]

REACTIONS (4)
  - CONFUSIONAL STATE [None]
  - FATIGUE [None]
  - NECK PAIN [None]
  - TEMPOROMANDIBULAR JOINT SYNDROME [None]
